FAERS Safety Report 13743537 (Version 4)
Quarter: 2017Q3

REPORT INFORMATION
  Report Type: Spontaneous
  Country: JP (occurrence: JP)
  Receive Date: 20170711
  Receipt Date: 20170823
  Transmission Date: 20171127
  Serious: Yes (Death, Hospitalization)
  Sender: FDA-Public Use
  Company Number: JP-MITSUBISHI TANABE PHARMA CORPORATION-MTPC2017-0012225

PATIENT
  Age: 83 Year
  Sex: Male
  Weight: 48 kg

DRUGS (15)
  1. NOVASTAN [Suspect]
     Active Substance: ARGATROBAN
     Route: 041
     Dates: start: 20161215, end: 20161219
  2. SULBACILLIN [Suspect]
     Active Substance: AMPICILLIN SODIUM\SULBACTAM SODIUM
     Indication: PNEUMONIA ASPIRATION
     Route: 041
     Dates: start: 20161214, end: 20161219
  3. PLAVIX [Suspect]
     Active Substance: CLOPIDOGREL BISULFATE
     Route: 048
     Dates: start: 20170127, end: 20170220
  4. LOW-MOLECULAR DEXTRAN L [Concomitant]
     Route: 041
     Dates: start: 20161217, end: 20161219
  5. CARBOCISTEINE [Suspect]
     Active Substance: CARBOCYSTEINE
     Route: 048
     Dates: start: 20161218, end: 20161224
  6. LANSOPRAZOLE OD [Suspect]
     Active Substance: LANSOPRAZOLE
     Route: 048
     Dates: start: 20161218, end: 20161224
  7. LOW-MOLECULAR DEXTRAN L [Concomitant]
     Indication: THROMBOTIC CEREBRAL INFARCTION
     Route: 041
     Dates: start: 20161214, end: 20161214
  8. NOVASTAN [Suspect]
     Active Substance: ARGATROBAN
     Indication: THROMBOTIC CEREBRAL INFARCTION
     Route: 041
     Dates: start: 20161213, end: 20161214
  9. SULBACILLIN [Suspect]
     Active Substance: AMPICILLIN SODIUM\SULBACTAM SODIUM
     Route: 041
     Dates: start: 20170203, end: 20170207
  10. LOXOPROFEN [Suspect]
     Active Substance: LOXOPROFEN
     Route: 048
     Dates: start: 20161219, end: 20161223
  11. RADICUT [Suspect]
     Active Substance: EDARAVONE
     Indication: THROMBOTIC CEREBRAL INFARCTION
     Route: 041
     Dates: start: 20161213, end: 20161224
  12. SULBACILLIN [Suspect]
     Active Substance: AMPICILLIN SODIUM\SULBACTAM SODIUM
     Route: 041
     Dates: start: 20170116, end: 20170124
  13. OMEPRAZOLE. [Concomitant]
     Active Substance: OMEPRAZOLE
     Indication: PROPHYLAXIS AGAINST GASTROINTESTINAL ULCER
     Route: 042
     Dates: start: 20161215, end: 20161218
  14. PLAVIX [Suspect]
     Active Substance: CLOPIDOGREL BISULFATE
     Route: 048
     Dates: start: 20161218, end: 20161224
  15. BAYASPIRIN [Suspect]
     Active Substance: ASPIRIN
     Route: 048
     Dates: start: 20161218, end: 20161224

REACTIONS (2)
  - Pneumonia aspiration [Fatal]
  - Disseminated intravascular coagulation [Recovering/Resolving]

NARRATIVE: CASE EVENT DATE: 20161224
